FAERS Safety Report 11086275 (Version 2)
Quarter: 2015Q2

REPORT INFORMATION
  Report Type: Spontaneous
  Country: US (occurrence: CA)
  Receive Date: 20150503
  Receipt Date: 20150506
  Transmission Date: 20150821
  Serious: Yes (Other)
  Sender: FDA-Public Use
  Company Number: US-MYLANLABS-2015M1014181

PATIENT

DRUGS (2)
  1. METHOTREXATE [Suspect]
     Active Substance: METHOTREXATE
     Dosage: UNK
  2. XELJANZ [Suspect]
     Active Substance: TOFACITINIB CITRATE
     Dosage: 5 MG, BID
     Route: 048
     Dates: start: 20150327

REACTIONS (5)
  - Influenza [Recovered/Resolved]
  - Eye infection [Recovered/Resolved]
  - Eye discharge [Not Recovered/Not Resolved]
  - Eye disorder [Not Recovered/Not Resolved]
  - Productive cough [Not Recovered/Not Resolved]
